FAERS Safety Report 13157965 (Version 1)
Quarter: 2017Q1

REPORT INFORMATION
  Report Type: Spontaneous
  Country: US (occurrence: US)
  Receive Date: 20170124
  Receipt Date: 20170124
  Transmission Date: 20170428
  Serious: Yes (Hospitalization)
  Sender: FDA-Public Use
  Company Number: None

PATIENT
  Age: 56 Year
  Sex: Female

DRUGS (10)
  1. KCL [Concomitant]
     Active Substance: POTASSIUM CHLORIDE
  2. DOLUTEGRAVIR [Concomitant]
     Active Substance: DOLUTEGRAVIR
  3. BENZONATATE. [Concomitant]
     Active Substance: BENZONATATE
  4. LISINOPRIL. [Concomitant]
     Active Substance: LISINOPRIL
  5. ABACAVIR. [Concomitant]
     Active Substance: ABACAVIR
  6. ERGOCALCIFEROL. [Suspect]
     Active Substance: ERGOCALCIFEROL
  7. FLUTICASONE. [Concomitant]
     Active Substance: FLUTICASONE
  8. LETAIRIS [Suspect]
     Active Substance: AMBRISENTAN
     Indication: PULMONARY ARTERIAL HYPERTENSION
     Route: 048
     Dates: start: 20161111
  9. TREPROSTINIL [Concomitant]
     Active Substance: TREPROSTINIL
  10. GABAPENTIN. [Concomitant]
     Active Substance: GABAPENTIN

REACTIONS (4)
  - Fluid overload [None]
  - Treatment noncompliance [None]
  - Pulmonary hypertension [None]
  - Respiratory failure [None]

NARRATIVE: CASE EVENT DATE: 20161117
